FAERS Safety Report 7825641-0 (Version None)
Quarter: 2011Q4

REPORT INFORMATION
  Report Type: 
  Country: None (occurrence: None)
  Receive Date: 20111017
  Receipt Date: 20100413
  Transmission Date: 20120403
  Serious: No
  Sender: FDA-Public Use
  Company Number: 2010BH009780

PATIENT
  Age: 53 Year
  Sex: Male

DRUGS (3)
  1. VASOTEC [Concomitant]
  2. HEMOFIL M [Suspect]
     Indication: FACTOR VIII DEFICIENCY
     Dosage: 2400 IU;AS NEEDED; 3X A WEEK
     Dates: start: 20100404, end: 20100404
  3. ANTIHEMOPHILIC FACTOR NOS [Concomitant]

REACTIONS (2)
  - APPLICATION SITE PRURITUS [None]
  - CHEST PAIN [None]
